FAERS Safety Report 8417868-4 (Version None)
Quarter: 2012Q2

REPORT INFORMATION
  Report Type: 
  Country: None (occurrence: None)
  Receive Date: 20120607
  Receipt Date: 20120604
  Transmission Date: 20120825
  Serious: No
  Sender: FDA-Public Use
  Company Number: US-PFIZER INC-2012134302

PATIENT
  Sex: Female
  Weight: 61.224 kg

DRUGS (2)
  1. TOVIAZ [Suspect]
     Indication: RENAL PAIN
     Dosage: 8 MG, 1X/DAY
     Route: 048
     Dates: start: 20120528
  2. NOVOLOG [Concomitant]
     Indication: TYPE 1 DIABETES MELLITUS
     Dosage: UNK

REACTIONS (1)
  - HYPERTENSION [None]
